FAERS Safety Report 7236525-3 (Version None)
Quarter: 2011Q1

REPORT INFORMATION
  Report Type: 
  Country: None (occurrence: None)
  Receive Date: 20110120
  Receipt Date: 20110110
  Transmission Date: 20110831
  Serious: No
  Sender: FDA-Public Use
  Company Number: US-B.I. PHARMACEUTICALS,INC./RIDGEFIELD-2011-BP-01046BP

PATIENT
  Sex: Male

DRUGS (9)
  1. SULINDAC [Concomitant]
     Indication: GOUT
     Dosage: 150 MG
     Route: 048
  2. METOPROLOL [Concomitant]
     Dosage: 100 MG
     Route: 048
  3. PRADAXA [Suspect]
     Indication: CORONARY ARTERIAL STENT INSERTION
     Dosage: 300 MG
     Route: 048
     Dates: start: 20101227
  4. DILTIAZEM [Concomitant]
     Dosage: 240 MG
     Route: 048
  5. DIOVAN [Concomitant]
     Dosage: 25 MG
     Route: 048
  6. SIMVASTATIN [Concomitant]
     Dosage: 20 MG
     Route: 048
  7. METFORMIN [Concomitant]
     Indication: DIABETES MELLITUS
     Dosage: 1000 MG
     Route: 048
  8. QUINAPRIL [Concomitant]
     Indication: HYPERTENSION
     Dosage: 40 MG
     Route: 048
  9. PLAVIX [Concomitant]
     Dosage: 75 MG
     Route: 048

REACTIONS (2)
  - PAIN IN EXTREMITY [None]
  - OEDEMA PERIPHERAL [None]
